FAERS Safety Report 5578870-3 (Version None)
Quarter: 2007Q4

REPORT INFORMATION
  Report Type: 
  Country: None (occurrence: None)
  Receive Date: 20071228
  Receipt Date: 20071219
  Transmission Date: 20080405
  Serious: Yes (Death, Hospitalization)
  Sender: FDA-Public Use
  Company Number: 2007-05855

PATIENT
  Age: 38 Year
  Sex: Male

DRUGS (2)
  1. ANDRODERM [Suspect]
     Indication: DRUG ABUSE
     Dosage: ORAL
     Route: 048
  2. METHANDROSTENOLONE [Suspect]
     Indication: DRUG ABUSE
     Dosage: INTRAMUSCULAR
     Route: 030

REACTIONS (2)
  - DRUG ABUSE [None]
  - NEPHROBLASTOMA [None]
